FAERS Safety Report 16971681 (Version 3)
Quarter: 2019Q4

REPORT INFORMATION
  Report Type: Report from Study
  Country: US (occurrence: US)
  Receive Date: 20191029
  Receipt Date: 20191115
  Transmission Date: 20200122
  Serious: Yes (Hospitalization)
  Sender: FDA-Public Use
  Company Number: US-JNJFOC-20190909058

PATIENT
  Age: 78 Year
  Sex: Male

DRUGS (14)
  1. TAMSULOSIN [Concomitant]
     Active Substance: TAMSULOSIN
  2. NITROGLYCERIN. [Concomitant]
     Active Substance: NITROGLYCERIN
  3. VYTORIN [Concomitant]
     Active Substance: EZETIMIBE\SIMVASTATIN
  4. IMBRUVICA [Suspect]
     Active Substance: IBRUTINIB
     Dosage: 420 MG, QD
     Route: 048
     Dates: start: 20170414, end: 20190925
  5. ACYCLOVIR                          /00587301/ [Concomitant]
     Active Substance: ACYCLOVIR
  6. IMBRUVICA [Suspect]
     Active Substance: IBRUTINIB
     Indication: CHRONIC LYMPHOCYTIC LEUKAEMIA
     Dosage: 420 MG, QD
     Route: 048
     Dates: start: 20170327, end: 20180504
  7. ASMANEX [Concomitant]
     Active Substance: MOMETASONE FUROATE
  8. SPIRIVA [Concomitant]
     Active Substance: TIOTROPIUM BROMIDE MONOHYDRATE
  9. IMBRUVICA [Suspect]
     Active Substance: IBRUTINIB
     Dosage: 420 MG, QD
     Route: 048
     Dates: start: 20190209
  10. ALBUTEROL                          /00139501/ [Concomitant]
     Active Substance: ALBUTEROL
  11. ALLOPURINOL. [Concomitant]
     Active Substance: ALLOPURINOL
  12. LEVOTHYROXINE. [Concomitant]
     Active Substance: LEVOTHYROXINE
  13. FINASTERIDE. [Concomitant]
     Active Substance: FINASTERIDE
  14. METOPROLOL SUCCINATE. [Concomitant]
     Active Substance: METOPROLOL SUCCINATE

REACTIONS (7)
  - Haemoglobin decreased [Unknown]
  - Dizziness [Unknown]
  - Haematuria [Recovering/Resolving]
  - Malaise [Unknown]
  - Urinary retention [Recovering/Resolving]
  - Infection [Unknown]
  - Benign prostatic hyperplasia [Recovering/Resolving]

NARRATIVE: CASE EVENT DATE: 20190911
